FAERS Safety Report 5697957-8 (Version None)
Quarter: 2008Q2

REPORT INFORMATION
  Report Type: 
  Country: None (occurrence: None)
  Receive Date: 20080408
  Receipt Date: 20080327
  Transmission Date: 20081010
  Serious: Yes (Other)
  Sender: FDA-Public Use
  Company Number: CA-ELI_LILLY_AND_COMPANY-CA200804001602

PATIENT
  Age: 38 Year
  Sex: Female

DRUGS (16)
  1. FORTEO [Suspect]
     Indication: OSTEOPOROSIS
     Dosage: 20 UG, DAILY (1/D)
     Route: 058
     Dates: start: 20061107, end: 20061213
  2. FORTEO [Suspect]
     Dosage: 20 UG, DAILY (1/D)
     Route: 058
     Dates: start: 20070917
  3. FORTEO [Suspect]
     Dosage: 20 UG, DAILY (1/D)
     Route: 058
  4. ARAVA [Concomitant]
  5. PREDNISONE [Concomitant]
  6. IMURAN [Concomitant]
  7. INDERAL [Concomitant]
  8. SERC                               /00034201/ [Concomitant]
  9. MEDROXYPROGESTERONE [Concomitant]
  10. NORVASC [Concomitant]
  11. FERROUS GLUCONATE [Concomitant]
  12. LOSEC I.V. [Concomitant]
  13. LIPITOR [Concomitant]
  14. AMILORIDE HYDROCHLORIDE [Concomitant]
  15. COUMADIN [Concomitant]
  16. ALFACALCIDOL [Concomitant]

REACTIONS (3)
  - MYOCARDIAL INFARCTION [None]
  - MYOCARDIAL ISCHAEMIA [None]
  - RENAL FAILURE [None]
